FAERS Safety Report 9563970 (Version 7)
Quarter: 2016Q1

REPORT INFORMATION
  Report Type: Report from Study
  Country: BR (occurrence: BR)
  Receive Date: 20130928
  Receipt Date: 20160118
  Transmission Date: 20160526
  Serious: No
  Sender: FDA-Public Use
  Company Number: BR-ROCHE-1266772

PATIENT
  Sex: Female
  Weight: 78 kg

DRUGS (9)
  1. MABTHERA [Suspect]
     Active Substance: RITUXIMAB
     Route: 042
     Dates: start: 20140108
  2. MABTHERA [Suspect]
     Active Substance: RITUXIMAB
     Indication: RHEUMATOID ARTHRITIS
     Dosage: 4 VIALS A MONTH ( (2 VIALS EVERY 15 DAYS) EVERY SIX MONTHS
     Route: 042
     Dates: start: 20130710
  3. MABTHERA [Suspect]
     Active Substance: RITUXIMAB
     Dosage: SECOND INFUSION? 4 VIALS A MONTH ( (2 VIALS EVERY 15 DAYS) EVERY SIX MONTHS
     Route: 042
     Dates: start: 20130725
  4. FUROSEMIDE. [Concomitant]
     Active Substance: FUROSEMIDE
     Indication: DEPRESSION
     Route: 065
     Dates: start: 2014
  5. MABTHERA [Suspect]
     Active Substance: RITUXIMAB
     Dosage: 4 VIALS A MONTH ( (2 VIALS EVERY 15 DAYS) EVERY SIX MONTHS
     Route: 042
     Dates: start: 20140122
  6. ENALAPRIL [Concomitant]
     Active Substance: ENALAPRIL
     Indication: BLOOD PRESSURE ABNORMAL
     Route: 065
     Dates: start: 2006
  7. SERTRALINE [Concomitant]
     Active Substance: SERTRALINE HYDROCHLORIDE
  8. RIVOTRIL [Suspect]
     Active Substance: CLONAZEPAM
     Indication: DEPRESSION
     Route: 065
  9. CALCITRIOL. [Concomitant]
     Active Substance: CALCITRIOL

REACTIONS (8)
  - Gait disturbance [Not Recovered/Not Resolved]
  - Cyst [Unknown]
  - Pain [Not Recovered/Not Resolved]
  - Pain in extremity [Not Recovered/Not Resolved]
  - Joint destruction [Unknown]
  - Drug ineffective [Unknown]
  - Joint swelling [Unknown]
  - Arthralgia [Not Recovered/Not Resolved]
